FAERS Safety Report 11242187 (Version 1)
Quarter: 2015Q3

REPORT INFORMATION
  Report Type: Report from Study
  Country: CA (occurrence: CA)
  Receive Date: 20150707
  Receipt Date: 20150707
  Transmission Date: 20151125
  Serious: Yes (Other)
  Sender: FDA-Public Use
  Company Number: CA-ROCHE-1603962

PATIENT
  Age: 64 Year
  Sex: Male

DRUGS (10)
  1. RATIO IRBESARTAN [Concomitant]
  2. TRAVATAN [Concomitant]
     Active Substance: TRAVOPROST
  3. ZYMAR [Concomitant]
     Active Substance: GATIFLOXACIN
  4. RANIBIZUMAB [Suspect]
     Active Substance: RANIBIZUMAB
     Indication: AGE-RELATED MACULAR DEGENERATION
     Dosage: LAST DOSE PRIOR TO SCALP SKIN CANCER: 06/AUG/2014
     Route: 050
     Dates: start: 20140507
  5. ACCUTANE [Concomitant]
     Active Substance: ISOTRETINOIN
  6. PULMICORT TURBUHALER [Concomitant]
     Active Substance: BUDESONIDE
  7. TEVA ROSUVASTATIN [Concomitant]
  8. METROGEL [Concomitant]
     Active Substance: METRONIDAZOLE
  9. ATIVAN [Concomitant]
     Active Substance: LORAZEPAM
  10. PMS-METFORMIN [Concomitant]

REACTIONS (2)
  - Skin cancer [Not Recovered/Not Resolved]
  - Wound [Unknown]

NARRATIVE: CASE EVENT DATE: 20140901
